FAERS Safety Report 15430883 (Version 1)
Quarter: 2018Q3

REPORT INFORMATION
  Report Type: Spontaneous
  Country: US (occurrence: US)
  Receive Date: 20180926
  Receipt Date: 20180926
  Transmission Date: 20181010
  Serious: No
  Sender: FDA-Public Use
  Company Number: US-TELIGENT, INC-IGIL20180539

PATIENT
  Age: 89 Year
  Sex: Male

DRUGS (4)
  1. TAMULOSIN [Concomitant]
     Active Substance: TAMSULOSIN
     Indication: BLADDER DISORDER
     Dosage: UNKNOWN
     Route: 065
  2. ECONAZOLE NITRATE CREAM 1% [Suspect]
     Active Substance: ECONAZOLE NITRATE
     Indication: FUNGAL INFECTION
     Dosage: UNKNOWN
     Route: 061
     Dates: start: 20180915
  3. ASPIRIN. [Concomitant]
     Active Substance: ASPIRIN
     Indication: PRODUCT USED FOR UNKNOWN INDICATION
     Dosage: UNKNOWN
     Route: 065
  4. UNSPECIFIED MEDICATION FOR ACID REFLUX [Concomitant]
     Indication: GASTROOESOPHAGEAL REFLUX DISEASE
     Dosage: UNKNOWN
     Route: 065

REACTIONS (1)
  - Drug ineffective [Not Recovered/Not Resolved]

NARRATIVE: CASE EVENT DATE: 20180915
